FAERS Safety Report 20072690 (Version 1)
Quarter: 2021Q4

REPORT INFORMATION
  Report Type: Spontaneous
  Country: US (occurrence: US)
  Receive Date: 20211116
  Receipt Date: 20211116
  Transmission Date: 20220304
  Serious: No
  Sender: FDA-Public Use
  Company Number: US-BoehringerIngelheim-2021-BI-138512

PATIENT
  Age: 76 Year
  Sex: Male

DRUGS (1)
  1. OFEV [Suspect]
     Active Substance: NINTEDANIB
     Indication: Idiopathic pulmonary fibrosis
     Dosage: TAKE 1 CAPSULE BY MOUTH TWICE DAILY (12 HOURS APART) WITH FOOD
     Route: 048
     Dates: start: 20180418

REACTIONS (1)
  - Musculoskeletal chest pain [Unknown]

NARRATIVE: CASE EVENT DATE: 20210101
